FAERS Safety Report 18604821 (Version 1)
Quarter: 2020Q4

REPORT INFORMATION
  Report Type: Spontaneous
  Country: US (occurrence: US)
  Receive Date: 20201211
  Receipt Date: 20201211
  Transmission Date: 20210114
  Serious: No
  Sender: FDA-Public Use
  Company Number: US-SA-2020SA351026

PATIENT

DRUGS (1)
  1. KEVZARA [Suspect]
     Active Substance: SARILUMAB
     Indication: RHEUMATOID ARTHRITIS
     Dosage: 150 MG, QOW
     Route: 058
     Dates: start: 201911

REACTIONS (24)
  - Burning sensation [Unknown]
  - Fatigue [Unknown]
  - Memory impairment [Unknown]
  - Dizziness [Unknown]
  - Pruritus [Unknown]
  - Constipation [Unknown]
  - Nausea [Unknown]
  - Dyspnoea [Unknown]
  - Arthralgia [Unknown]
  - Dysphagia [Unknown]
  - Joint stiffness [Unknown]
  - Dry mouth [Unknown]
  - Depression [Unknown]
  - Back pain [Unknown]
  - Dry eye [Unknown]
  - Tinnitus [Unknown]
  - Insomnia [Unknown]
  - Pain in extremity [Unknown]
  - Alopecia [Unknown]
  - Neck pain [Unknown]
  - Joint swelling [Unknown]
  - Myalgia [Unknown]
  - Asthenia [Unknown]
  - Diarrhoea [Unknown]
